FAERS Safety Report 12531309 (Version 2)
Quarter: 2016Q3

REPORT INFORMATION
  Report Type: Spontaneous
  Country: US (occurrence: US)
  Receive Date: 20160706
  Receipt Date: 20160712
  Transmission Date: 20161109
  Serious: No
  Sender: FDA-Public Use
  Company Number: US-BIOMARINAP-US-2016-110330

PATIENT
  Age: 17 Year
  Sex: Female
  Weight: 21 kg

DRUGS (1)
  1. VIMIZIM [Suspect]
     Active Substance: ELOSULFASE ALFA
     Indication: MUCOPOLYSACCHARIDOSIS IV
     Dosage: 45 MG, QW
     Route: 042
     Dates: start: 20160613

REACTIONS (5)
  - Device issue [Unknown]
  - Neck pain [Unknown]
  - Pain in extremity [Unknown]
  - Poor venous access [Unknown]
  - Vascular access site pain [Unknown]

NARRATIVE: CASE EVENT DATE: 20160630
